FAERS Safety Report 9943149 (Version 1)
Quarter: 2014Q1

REPORT INFORMATION
  Report Type: Spontaneous
  Country: US (occurrence: US)
  Receive Date: 20140303
  Receipt Date: 20140303
  Transmission Date: 20141002
  Serious: Yes (Hospitalization)
  Sender: FDA-Public Use
  Company Number: US-GLAXOSMITHKLINE-A1062094A

PATIENT
  Age: 75 Year
  Sex: Male

DRUGS (13)
  1. ADVAIR [Suspect]
     Indication: CHRONIC OBSTRUCTIVE PULMONARY DISEASE
     Dosage: 1PUFF TWICE PER DAY
     Route: 055
     Dates: start: 2004
  2. NOVOLOG INSULIN [Concomitant]
  3. POTASSIUM [Concomitant]
  4. LISINOPRIL [Concomitant]
  5. FUROSEMIDE [Concomitant]
  6. WARFARIN [Concomitant]
  7. SIMVASTATIN [Concomitant]
  8. CLOPIDOGREL [Concomitant]
  9. ALLOPURINOL [Concomitant]
  10. SPIRIVA [Concomitant]
  11. MULTIVITAMIN [Concomitant]
  12. HYDROCODONE [Concomitant]
  13. ALBUTEROL NEBS [Concomitant]

REACTIONS (13)
  - Mental impairment [Recovering/Resolving]
  - Myocardial infarction [Recovering/Resolving]
  - Haemorrhage [Recovering/Resolving]
  - Transfusion [Recovering/Resolving]
  - Coronary arterial stent insertion [Recovering/Resolving]
  - Pneumonia [Recovering/Resolving]
  - Pericardial effusion [Recovering/Resolving]
  - Swelling [Recovering/Resolving]
  - Gastrointestinal disorder [Recovering/Resolving]
  - Therapeutic procedure [Recovering/Resolving]
  - Skin discolouration [Recovering/Resolving]
  - Local swelling [Not Recovered/Not Resolved]
  - Adverse event [Unknown]
